FAERS Safety Report 25766450 (Version 2)
Quarter: 2025Q3

REPORT INFORMATION
  Report Type: Spontaneous
  Country: EU (occurrence: EU)
  Receive Date: 20250905
  Receipt Date: 20250909
  Transmission Date: 20251021
  Serious: Yes (Other)
  Sender: AZURITY PHARMACEUTICALS
  Company Number: EU-AZURITY PHARMACEUTICALS, INC.-AZR202508-002691

PATIENT
  Sex: Male

DRUGS (4)
  1. TRIPTORELIN [Suspect]
     Active Substance: TRIPTORELIN
     Indication: Prostate cancer
     Route: 065
     Dates: start: 202302
  2. TRIPTORELIN [Suspect]
     Active Substance: TRIPTORELIN
     Route: 065
     Dates: start: 202303
  3. DAUNORUBICIN [Concomitant]
     Active Substance: DAUNORUBICIN
     Indication: Acute myeloid leukaemia
     Route: 065
  4. CYTARABINE [Concomitant]
     Active Substance: CYTARABINE
     Indication: Acute myeloid leukaemia
     Route: 065

REACTIONS (3)
  - Pancytopenia [Unknown]
  - Full blood count abnormal [Unknown]
  - Haemoglobin decreased [Unknown]

NARRATIVE: CASE EVENT DATE: 20230201
